FAERS Safety Report 9340979 (Version 1)
Quarter: 2013Q2

REPORT INFORMATION
  Report Type: Report from Study
  Country: US (occurrence: US)
  Receive Date: 20130610
  Receipt Date: 20130610
  Transmission Date: 20140414
  Serious: Yes (Disabling, Other)
  Sender: FDA-Public Use
  Company Number: US-US-EMD SERONO, INC.-7215508

PATIENT
  Age: 7 Year
  Sex: Female

DRUGS (3)
  1. SAIZEN [(SOMATROPIN (RDNA ORIGIN) FOR INJECTION)] [Suspect]
     Indication: TURNER^S SYNDROME
     Dates: start: 20090517
  2. SAIZEN [(SOMATROPIN (RDNA ORIGIN) FOR INJECTION)] [Suspect]
     Dates: start: 201212
  3. VITAMIN D                          /00107901/ [Concomitant]
     Indication: VITAMIN D ABNORMAL

REACTIONS (4)
  - Pyelocaliectasis [Recovered/Resolved]
  - Deafness [Recovering/Resolving]
  - Paronychia [Not Recovered/Not Resolved]
  - Local swelling [Not Recovered/Not Resolved]
